FAERS Safety Report 16497349 (Version 4)
Quarter: 2020Q2

REPORT INFORMATION
  Report Type: Report from Study
  Country: US (occurrence: US)
  Receive Date: 20190628
  Receipt Date: 20200414
  Transmission Date: 20200713
  Serious: Yes (Other)
  Sender: FDA-Public Use
  Company Number: US-TESARO-2019-TSO02153-US

PATIENT
  Age: 69 Year
  Sex: Female
  Weight: 78.91 kg

DRUGS (3)
  1. NIRAPARIB [Suspect]
     Active Substance: NIRAPARIB
     Indication: MALIGNANT PERITONEAL NEOPLASM
     Dosage: 100 MG, 9PM, W/O FOOD
     Route: 065
     Dates: start: 20190604, end: 20190704
  2. NIRAPARIB [Suspect]
     Active Substance: NIRAPARIB
     Dosage: 200 MG, QD
     Route: 048
     Dates: start: 20190705, end: 20190916
  3. NIRAPARIB [Suspect]
     Active Substance: NIRAPARIB
     Dosage: 100 MG, QD
     Route: 048
     Dates: end: 20190916

REACTIONS (10)
  - Neuropathy peripheral [Not Recovered/Not Resolved]
  - Fatigue [Recovering/Resolving]
  - Malignant neoplasm progression [Unknown]
  - Nerve compression [Unknown]
  - Constipation [Recovered/Resolved]
  - Platelet count decreased [Unknown]
  - Underdose [Unknown]
  - Vomiting [Recovered/Resolved]
  - Recurrent cancer [Unknown]
  - Gingival pain [Recovered/Resolved]

NARRATIVE: CASE EVENT DATE: 20190604
